FAERS Safety Report 6788770-9 (Version None)
Quarter: 2010Q2

REPORT INFORMATION
  Report Type: 
  Country: None (occurrence: None)
  Receive Date: 20100623
  Receipt Date: 20080802
  Transmission Date: 20101027
  Serious: Yes (Hospitalization)
  Sender: FDA-Public Use
  Company Number: US-PFIZER INC-2008037410

PATIENT
  Age: 47 Year
  Sex: Female

DRUGS (17)
  1. GEODON [Suspect]
     Route: 048
     Dates: start: 20070701, end: 20080301
  2. LITHIUM [Concomitant]
     Route: 048
     Dates: start: 19920101
  3. RISPERDAL [Concomitant]
     Route: 048
     Dates: start: 19980101, end: 20070801
  4. XANAX [Concomitant]
     Route: 048
     Dates: start: 20060101
  5. WELLBUTRIN [Concomitant]
     Route: 048
  6. MONTELUKAST [Concomitant]
     Route: 048
  7. DILTIAZEM [Concomitant]
     Route: 048
     Dates: start: 20040101
  8. SEREVENT [Concomitant]
     Route: 048
  9. PROVENTIL TABLET [Concomitant]
     Route: 048
  10. AZMACORT [Concomitant]
     Route: 048
  11. ACETYLSALICYLIC ACID [Concomitant]
     Route: 048
  12. HYDROCHLOROTHIAZIDE [Concomitant]
     Route: 048
     Dates: start: 20060101
  13. ESTRADIOL [Concomitant]
     Route: 048
     Dates: start: 20060101
  14. VYTORIN [Concomitant]
     Route: 048
  15. ALL OTHER THERAPEUTIC PRODUCTS [Concomitant]
     Route: 048
     Dates: start: 20060101
  16. NASACORT [Concomitant]
  17. CYANOCOBALAMIN [Concomitant]
     Route: 048

REACTIONS (3)
  - ABDOMINAL PAIN [None]
  - NAUSEA [None]
  - VOMITING [None]
